FAERS Safety Report 5796218-6 (Version None)
Quarter: 2008Q3

REPORT INFORMATION
  Report Type: 
  Country: None (occurrence: None)
  Receive Date: 20080701
  Receipt Date: 20080620
  Transmission Date: 20090109
  Serious: Yes (Life-Threatening)
  Sender: FDA-Public Use
  Company Number: JP-TYCO HEALTHCARE/MALLINCKRODT-T200800913

PATIENT

DRUGS (6)
  1. OPTIRAY 300 [Suspect]
     Indication: COMPUTERISED TOMOGRAM
     Dosage: 100 ML, SINGLE
     Route: 042
     Dates: start: 20080526, end: 20080526
  2. METOPROLOL TARTRATE [Concomitant]
     Dosage: 120 MG, QD
     Route: 048
  3. ASPIRIN [Concomitant]
     Dosage: 100 MG, QD
     Route: 048
  4. OLMESARTAN MEDOXOMIL [Concomitant]
     Dosage: 20 MG, QD
     Route: 048
  5. DIGOXIN [Concomitant]
     Dosage: .125 MG, QD
     Route: 048
  6. FUROSEMIDE [Concomitant]
     Dosage: 20 MG, QD
     Route: 048

REACTIONS (1)
  - SHOCK [None]
